FAERS Safety Report 22116707 (Version 1)
Quarter: 2023Q1

REPORT INFORMATION
  Report Type: Report from Study
  Country: IT (occurrence: IT)
  Receive Date: 20230320
  Receipt Date: 20230320
  Transmission Date: 20230417
  Serious: Yes (Hospitalization)
  Sender: FDA-Public Use
  Company Number: None

PATIENT
  Age: 62 Year
  Sex: Female

DRUGS (1)
  1. TYSABRI [Suspect]
     Active Substance: NATALIZUMAB
     Indication: Relapsing-remitting multiple sclerosis
     Dosage: 1 INFUSIONE OF 300 MG
     Route: 050
     Dates: start: 20180718

REACTIONS (1)
  - Cellulitis pharyngeal [Recovered/Resolved]

NARRATIVE: CASE EVENT DATE: 20230208
